FAERS Safety Report 6901475-6 (Version None)
Quarter: 2010Q3

REPORT INFORMATION
  Report Type: 
  Country: None (occurrence: None)
  Receive Date: 20100803
  Receipt Date: 20080206
  Transmission Date: 20110219
  Serious: Yes (Other)
  Sender: FDA-Public Use
  Company Number: US-PFIZER INC-2008012674

PATIENT
  Age: 47 Year
  Sex: Female
  Weight: 63.6 kg

DRUGS (2)
  1. LYRICA [Suspect]
     Indication: FIBROMYALGIA
     Dates: start: 20080101
  2. EFFEXOR XR [Concomitant]

REACTIONS (3)
  - EYE PAIN [None]
  - HEADACHE [None]
  - OEDEMA [None]
